FAERS Safety Report 5998166-5 (Version None)
Quarter: 2008Q4

REPORT INFORMATION
  Report Type: 
  Country: None (occurrence: None)
  Receive Date: 20081213
  Receipt Date: 20080624
  Transmission Date: 20090506
  Serious: No
  Sender: FDA-Public Use
  Company Number: US-AMGEN-KDL289716

PATIENT
  Sex: Male

DRUGS (2)
  1. ENBREL [Suspect]
     Indication: RHEUMATOID ARTHRITIS
     Route: 058
     Dates: start: 20080417
  2. PLAQUENIL [Concomitant]
     Route: 048
     Dates: start: 19830601

REACTIONS (8)
  - ARTHRALGIA [None]
  - DIZZINESS [None]
  - JOINT STIFFNESS [None]
  - MUSCULOSKELETAL PAIN [None]
  - MUSCULOSKELETAL STIFFNESS [None]
  - ORAL HERPES [None]
  - SWELLING FACE [None]
  - TOOTH INFECTION [None]
